FAERS Safety Report 13388436 (Version 1)
Quarter: 2017Q1

REPORT INFORMATION
  Report Type: Spontaneous
  Country: BR (occurrence: BR)
  Receive Date: 20170330
  Receipt Date: 20170330
  Transmission Date: 20170429
  Serious: Yes (Other)
  Sender: FDA-Public Use
  Company Number: BR-GLAXOSMITHKLINE-BR2016GSK129917

PATIENT
  Sex: Female
  Weight: 59 kg

DRUGS (5)
  1. BENLYSTA [Suspect]
     Active Substance: BELIMUMAB
     Indication: SYSTEMIC LUPUS ERYTHEMATOSUS
     Dosage: UNK
     Dates: start: 20160419
  2. PREDNISONE. [Concomitant]
     Active Substance: PREDNISONE
     Indication: PROTEIN DEFICIENCY
     Dosage: UNK
  3. PREDNISONE. [Concomitant]
     Active Substance: PREDNISONE
     Indication: ANAEMIA
  4. AZATHIOPRINE. [Concomitant]
     Active Substance: AZATHIOPRINE
     Indication: ANAEMIA
  5. AZATHIOPRINE. [Concomitant]
     Active Substance: AZATHIOPRINE
     Indication: PROTEIN DEFICIENCY
     Dosage: UNK

REACTIONS (3)
  - Medication error [Recovered/Resolved]
  - Nephritis [Unknown]
  - Inappropriate schedule of drug administration [Recovered/Resolved]
